FAERS Safety Report 9818240 (Version 2)
Quarter: 2014Q1

REPORT INFORMATION
  Report Type: Spontaneous
  Country: US (occurrence: US)
  Receive Date: 20140115
  Receipt Date: 20140115
  Transmission Date: 20141002
  Serious: Yes (Other)
  Sender: FDA-Public Use
  Company Number: PHEH2013US022352

PATIENT
  Age: 36 Year
  Sex: Male

DRUGS (1)
  1. GILENYA [Suspect]
     Route: 048

REACTIONS (4)
  - Optic neuritis [Unknown]
  - Strabismus [Unknown]
  - Cataract subcapsular [Unknown]
  - Macular oedema [Unknown]
